FAERS Safety Report 13912551 (Version 1)
Quarter: 2017Q3

REPORT INFORMATION
  Report Type: Report from Study
  Country: US (occurrence: US)
  Receive Date: 20170828
  Receipt Date: 20170828
  Transmission Date: 20171127
  Serious: Yes (Hospitalization, Other)
  Sender: FDA-Public Use
  Company Number: US-TEVA-791916USA

PATIENT
  Sex: Male

DRUGS (1)
  1. CLOZAPINE. [Suspect]
     Active Substance: CLOZAPINE
     Route: 048
     Dates: end: 2017

REACTIONS (3)
  - Cardiomyopathy [Recovering/Resolving]
  - Fall [Recovering/Resolving]
  - Orthostatic intolerance [Recovering/Resolving]

NARRATIVE: CASE EVENT DATE: 2017
